FAERS Safety Report 8016781-4 (Version None)
Quarter: 2012Q1

REPORT INFORMATION
  Report Type: 
  Country: None (occurrence: None)
  Receive Date: 20120102
  Receipt Date: 20111214
  Transmission Date: 20120608
  Serious: Yes (Hospitalization)
  Sender: FDA-Public Use
  Company Number: FI-NOVOPROD-329996

PATIENT

DRUGS (3)
  1. PROTAPHANE [Suspect]
     Dosage: UNK
     Route: 064
     Dates: start: 20081023, end: 20081105
  2. PROTAPHANE [Suspect]
     Indication: GESTATIONAL DIABETES
     Dosage: UNK
     Route: 064
     Dates: start: 20081023, end: 20081105
  3. HUMALOG [Suspect]
     Indication: GESTATIONAL DIABETES
     Dosage: 2 IU, QID
     Route: 064

REACTIONS (3)
  - PREMATURE BABY [None]
  - FOETAL EXPOSURE DURING PREGNANCY [None]
  - HYPERBILIRUBINAEMIA [None]
